FAERS Safety Report 25867540 (Version 1)
Quarter: 2025Q4

REPORT INFORMATION
  Report Type: Spontaneous
  Country: EU (occurrence: EU)
  Receive Date: 20251001
  Receipt Date: 20251001
  Transmission Date: 20260117
  Serious: Yes (Death, Other)
  Sender: CELLTRION
  Company Number: EU-ROCHE-10000383535

PATIENT

DRUGS (1)
  1. RITUXIMAB [Suspect]
     Active Substance: RITUXIMAB
     Indication: Haemophagocytic lymphohistiocytosis

REACTIONS (4)
  - Multiple organ dysfunction syndrome [Fatal]
  - Bacteraemia [Unknown]
  - Bronchopulmonary aspergillosis [Unknown]
  - Intentional product use issue [Unknown]
